FAERS Safety Report 9628956 (Version 1)
Quarter: 2013Q4

REPORT INFORMATION
  Report Type: Spontaneous
  Country: US (occurrence: US)
  Receive Date: 20131017
  Receipt Date: 20131017
  Transmission Date: 20140711
  Serious: No
  Sender: FDA-Public Use
  Company Number: US-PFIZER INC-2013296331

PATIENT
  Age: 53 Year
  Sex: Female
  Weight: 63.04 kg

DRUGS (2)
  1. ATORVASTATIN CALCIUM [Suspect]
     Indication: BLOOD CHOLESTEROL INCREASED
     Dosage: 40 MG, DAILY
     Route: 048
     Dates: start: 201303, end: 2013
  2. LEVOXYL [Concomitant]
     Indication: THYROID DISORDER
     Dosage: 137 UG, DAILY

REACTIONS (2)
  - Bone pain [Recovered/Resolved]
  - Pain [Recovered/Resolved]
